APPROVED DRUG PRODUCT: GEMCITABINE HYDROCHLORIDE
Active Ingredient: GEMCITABINE HYDROCHLORIDE
Strength: EQ 200MG BASE/VIAL
Dosage Form/Route: INJECTABLE;INJECTION
Application: A091597 | Product #001
Applicant: SAGENT PHARMACEUTICALS INC
Approved: May 7, 2013 | RLD: No | RS: No | Type: DISCN